FAERS Safety Report 13484726 (Version 1)
Quarter: 2017Q2

REPORT INFORMATION
  Report Type: Spontaneous
  Country: US (occurrence: US)
  Receive Date: 20170426
  Receipt Date: 20170426
  Transmission Date: 20170830
  Serious: No
  Sender: FDA-Public Use
  Company Number: US-PFIZER INC-2017179434

PATIENT
  Age: 61 Year
  Sex: Female
  Weight: 59.87 kg

DRUGS (2)
  1. VITAMIN D [Concomitant]
     Active Substance: CHOLECALCIFEROL
     Dosage: 200000 IU, 1X/DAY
  2. BOSULIF [Suspect]
     Active Substance: BOSUTINIB MONOHYDRATE
     Indication: CHRONIC MYELOID LEUKAEMIA
     Dosage: 500MG CAPSULE ONCE DAY AFTER BREAKFAST WITH FOOD
     Route: 048
     Dates: start: 20170301

REACTIONS (5)
  - Influenza like illness [Recovering/Resolving]
  - Pyrexia [Unknown]
  - White blood cell count increased [Not Recovered/Not Resolved]
  - Pain [Unknown]
  - Arthralgia [Recovering/Resolving]

NARRATIVE: CASE EVENT DATE: 20170409
